FAERS Safety Report 6600855-6 (Version None)
Quarter: 2010Q1

REPORT INFORMATION
  Report Type: 
  Country: None (occurrence: None)
  Receive Date: 20100223
  Receipt Date: 20100223
  Transmission Date: 20100710
  Serious: No
  Sender: FDA-Public Use
  Company Number: None

PATIENT
  Age: 56 Year
  Sex: Male
  Weight: 118.6 kg

DRUGS (1)
  1. FLOVENT [Suspect]
     Dosage: 220 MCG 2 PUFFS Q DAY INHALED
     Route: 055

REACTIONS (2)
  - DRUG EFFECT DECREASED [None]
  - POOR QUALITY DRUG ADMINISTERED [None]
